FAERS Safety Report 9669801 (Version 2)
Quarter: 2013Q4

REPORT INFORMATION
  Report Type: Spontaneous
  Country: US (occurrence: US)
  Receive Date: 20131105
  Receipt Date: 20131105
  Transmission Date: 20140711
  Serious: No
  Sender: FDA-Public Use
  Company Number: US-MYLANLABS-2013S1009658

PATIENT
  Sex: Female

DRUGS (5)
  1. NADOLOL TABLETS, USP [Suspect]
     Indication: ARRHYTHMIA
     Route: 048
  2. NADOLOL TABLETS, USP [Suspect]
     Indication: OFF LABEL USE
     Route: 048
  3. NADOLOL TABLETS, USP [Suspect]
     Indication: ARRHYTHMIA
     Route: 048
  4. NADOLOL TABLETS, USP [Suspect]
     Indication: OFF LABEL USE
     Route: 048
  5. SINGULAIR [Concomitant]
     Indication: BRONCHIECTASIS
     Dosage: TAKEN FOR YEARS
     Route: 048

REACTIONS (5)
  - Blood pressure increased [Not Recovered/Not Resolved]
  - Insomnia [Not Recovered/Not Resolved]
  - Palpitations [Not Recovered/Not Resolved]
  - Migraine [Not Recovered/Not Resolved]
  - Reaction to drug excipients [Not Recovered/Not Resolved]
